FAERS Safety Report 5120811-7 (Version None)
Quarter: 2006Q4

REPORT INFORMATION
  Report Type: 
  Country: None (occurrence: None)
  Receive Date: 20061005
  Receipt Date: 20060926
  Transmission Date: 20070319
  Serious: Yes (Death)
  Sender: FDA-Public Use
  Company Number: JP-JNJFOC-20060905692

PATIENT
  Age: 73 Year
  Sex: Male

DRUGS (5)
  1. TAVANIC [Suspect]
     Indication: DRUG USE FOR UNKNOWN INDICATION
     Route: 042
  2. LOVENOX [Concomitant]
     Route: 065
  3. LASIX [Concomitant]
     Route: 065
  4. COMBIVENT [Concomitant]
     Route: 065
  5. LOSEC [Concomitant]
     Route: 065

REACTIONS (3)
  - DEATH [None]
  - SOFT TISSUE NECROSIS [None]
  - SUBCUTANEOUS EMPHYSEMA [None]
